FAERS Safety Report 6048955-6 (Version None)
Quarter: 2009Q1

REPORT INFORMATION
  Report Type: 
  Country: None (occurrence: None)
  Receive Date: 20090123
  Receipt Date: 20090113
  Transmission Date: 20090719
  Serious: Yes (Other)
  Sender: FDA-Public Use
  Company Number: US-ELI_LILLY_AND_COMPANY-US200812002407

PATIENT
  Sex: Female

DRUGS (14)
  1. BYETTA [Suspect]
     Dosage: 10 UG, UNKNOWN
     Route: 065
     Dates: start: 20070829, end: 20080109
  2. METFORMIN HCL [Concomitant]
     Dosage: 500 MG, UNKNOWN
  3. GLIMEPIRIDE [Concomitant]
     Dosage: 4 MG, UNKNOWN
  4. LANTUS [Concomitant]
     Dosage: UNK, UNKNOWN
  5. LIPITOR [Concomitant]
     Dosage: 40 MG, UNKNOWN
  6. PROCHLORPERAZINE [Concomitant]
     Dosage: 5 MG, UNKNOWN
  7. TRIAMTERENE AND HYDROCHLOROTHIAZIDE [Concomitant]
     Dosage: UNK, UNKNOWN
  8. TRAMADOL HCL [Concomitant]
     Dosage: 50 MG, UNKNOWN
  9. BENAZEPRIL HYDROCHLORIDE [Concomitant]
     Dosage: 20 MG, UNKNOWN
  10. METOCLOPRAMIDE [Concomitant]
     Dosage: 10 MG, UNKNOWN
  11. LEVOTHYROXINE [Concomitant]
     Dosage: 200 UG, UNKNOWN
  12. LYRICA [Concomitant]
     Dosage: 75 MG, UNKNOWN
  13. CYMBALTA [Concomitant]
     Dosage: 60 MG, UNKNOWN
  14. PREMARIN [Concomitant]
     Dosage: 0.625 MG, UNKNOWN

REACTIONS (1)
  - PANCREATITIS [None]
